FAERS Safety Report 6262715-2 (Version None)
Quarter: 2009Q3

REPORT INFORMATION
  Report Type: 
  Country: None (occurrence: None)
  Receive Date: 20090708
  Receipt Date: 20090630
  Transmission Date: 20100115
  Serious: Yes (Other)
  Sender: FDA-Public Use
  Company Number: 2008AL012381

PATIENT
  Age: 72 Year
  Sex: Female
  Weight: 77.1115 kg

DRUGS (3)
  1. DIGOXIN [Suspect]
     Dosage: 0.25MG, DAILY, PO
     Route: 048
     Dates: end: 20080301
  2. CODEINE [Concomitant]
  3. CEFTIN [Concomitant]

REACTIONS (4)
  - GASTRIC DISORDER [None]
  - INFLUENZA LIKE ILLNESS [None]
  - MALAISE [None]
  - OVERDOSE [None]
